FAERS Safety Report 8190119-4 (Version None)
Quarter: 2012Q1

REPORT INFORMATION
  Report Type: 
  Country: None (occurrence: None)
  Receive Date: 20120307
  Receipt Date: 20120307
  Transmission Date: 20120608
  Serious: Yes (Other)
  Sender: FDA-Public Use
  Company Number: None

PATIENT
  Age: 23 Year
  Sex: Male
  Weight: 63.502 kg

DRUGS (3)
  1. SMZ/TMP DS 800-160 [Concomitant]
     Route: 048
  2. SULFAMETHOXAZOLE AND TRIMETHOPRIM [Suspect]
     Indication: CD4 LYMPHOCYTES DECREASED
     Dosage: 800-160
     Route: 048
     Dates: start: 20120211, end: 20120302
  3. DAPSONE [Concomitant]
     Indication: CD4 LYMPHOCYTES DECREASED
     Dosage: 100 MG
     Route: 048
     Dates: start: 20120305, end: 20120306

REACTIONS (4)
  - ALOPECIA [None]
  - STOMATITIS [None]
  - RASH ERYTHEMATOUS [None]
  - URTICARIA [None]
